FAERS Safety Report 11130130 (Version 1)
Quarter: 2015Q2

REPORT INFORMATION
  Report Type: Report from Study
  Country: GB (occurrence: GB)
  Receive Date: 20150521
  Receipt Date: 20150521
  Transmission Date: 20150821
  Serious: Yes (Death, Hospitalization)
  Sender: FDA-Public Use
  Company Number: GB-AMGEN-US251622

PATIENT
  Age: 17 Year
  Sex: Female

DRUGS (2)
  1. ETANERCEPT [Suspect]
     Active Substance: ETANERCEPT
     Indication: JUVENILE IDIOPATHIC ARTHRITIS
     Dosage: 22.2 MG, 2 TIMES/WK
     Route: 058
     Dates: start: 20030501, end: 200309
  2. ETANERCEPT [Suspect]
     Active Substance: ETANERCEPT
     Dosage: UNK
     Route: 058
     Dates: start: 200402, end: 200508

REACTIONS (11)
  - Haemolytic anaemia [Unknown]
  - Thrombocytopenia [Unknown]
  - Renal impairment [Fatal]
  - Nasal cavity mass [Unknown]
  - Adenovirus infection [Fatal]
  - Pancytopenia [Unknown]
  - Multi-organ failure [Fatal]
  - Sepsis [Fatal]
  - Encephalopathy [Fatal]
  - Conjunctival haemorrhage [Unknown]
  - Conjunctival oedema [Unknown]

NARRATIVE: CASE EVENT DATE: 2007
